FAERS Safety Report 4824316-X (Version None)
Quarter: 2005Q4

REPORT INFORMATION
  Report Type: 
  Country: None (occurrence: None)
  Receive Date: 20051109
  Receipt Date: 20050811
  Transmission Date: 20060501
  Serious: Yes (Hospitalization)
  Sender: FDA-Public Use
  Company Number: US-MERCK-0508USA02098

PATIENT
  Age: 55 Year
  Sex: Male
  Weight: 111 kg

DRUGS (11)
  1. CELEBREX [Concomitant]
     Indication: ARTHRITIS
     Route: 065
     Dates: start: 19990729, end: 20020307
  2. VIOXX [Suspect]
     Indication: ARTHRITIS
     Route: 048
     Dates: start: 20020307, end: 20041008
  3. VIOXX [Suspect]
     Route: 048
     Dates: start: 20020307, end: 20041008
  4. EFFEXOR [Concomitant]
     Indication: DEPRESSION
     Route: 065
  5. LEVOXYL [Concomitant]
     Indication: THYROID DISORDER
     Route: 065
     Dates: start: 19970101
  6. GEMFIBROZIL [Concomitant]
     Indication: BLOOD TRIGLYCERIDES INCREASED
     Route: 065
  7. ULTRACET [Concomitant]
     Indication: PAIN
     Route: 065
     Dates: start: 20000101, end: 20040101
  8. ACTOS [Concomitant]
     Indication: DIABETES MELLITUS
     Route: 065
  9. ACETAMINOPHEN AND HYDROCODONE BITARTRATE [Concomitant]
     Indication: PAIN
     Route: 065
     Dates: start: 20030101, end: 20040101
  10. DARVOCET-N 100 [Concomitant]
     Indication: PAIN
     Route: 065
     Dates: start: 20030101
  11. ZOCOR [Concomitant]
     Route: 065

REACTIONS (11)
  - ADRENAL DISORDER [None]
  - BLOOD CHOLESTEROL INCREASED [None]
  - BLOOD GLUCOSE INCREASED [None]
  - COLLAPSE OF LUNG [None]
  - CONTUSION [None]
  - DEEP VEIN THROMBOSIS [None]
  - LOWER LIMB FRACTURE [None]
  - NECK INJURY [None]
  - OVERDOSE [None]
  - RIB FRACTURE [None]
  - VARICOSE VEIN [None]
